FAERS Safety Report 5753846-1 (Version None)
Quarter: 2008Q2

REPORT INFORMATION
  Report Type: 
  Country: None (occurrence: None)
  Receive Date: 20080530
  Receipt Date: 20070628
  Transmission Date: 20081010
  Serious: No
  Sender: FDA-Public Use
  Company Number: A0660776A

PATIENT
  Age: 55 Year
  Sex: Female

DRUGS (7)
  1. FLOLAN [Suspect]
     Indication: PULMONARY HYPERTENSION
     Route: 042
     Dates: start: 20001101
  2. ATENOLOL [Concomitant]
     Dosage: 25MG PER DAY
     Route: 048
  3. FUROSEMIDE [Concomitant]
     Dosage: 40MG PER DAY
     Route: 048
  4. SPIRONOLACTONE [Concomitant]
     Dosage: 25MG PER DAY
     Route: 048
  5. WARFARIN SODIUM [Concomitant]
     Dosage: 2MG PER DAY
     Route: 048
  6. POTASSIUM CHLORIDE [Concomitant]
     Dosage: 20MEQ PER DAY
     Route: 048
  7. MAGNESIUM OXIDE [Concomitant]
     Dosage: 400MG PER DAY
     Route: 048

REACTIONS (4)
  - DRUG EFFECT DECREASED [None]
  - FLUSHING [None]
  - NEURALGIA [None]
  - PLATELET COUNT DECREASED [None]
